FAERS Safety Report 12887103 (Version 2)
Quarter: 2016Q4

REPORT INFORMATION
  Report Type: Spontaneous
  Country: FR (occurrence: FR)
  Receive Date: 20161026
  Receipt Date: 20161103
  Transmission Date: 20170207
  Serious: Yes (Other)
  Sender: FDA-Public Use
  Company Number: FR-GLAXOSMITHKLINE-FR2016GSK155277

PATIENT
  Age: 3 Month
  Sex: Male
  Weight: 6 kg

DRUGS (3)
  1. ZOVIRAX [Suspect]
     Active Substance: ACYCLOVIR
     Indication: MENINGITIS
     Dosage: 60 MG/KG, SINGLE
     Route: 042
     Dates: start: 20160928, end: 20160928
  2. CEFOTAXIME [Concomitant]
     Active Substance: CEFOTAXIME SODIUM
     Indication: MENINGITIS
     Dosage: UNK
     Dates: start: 20160928, end: 201609
  3. DEXTRION G5 [Suspect]
     Active Substance: CALCIUM GLUCONATE\DEXTROSE\POTASSIUM CHLORIDE\SODIUM CHLORIDE
     Indication: PRODUCT USED FOR UNKNOWN INDICATION
     Dosage: 25 UNK, SINGLE
     Dates: start: 20160928, end: 20160928

REACTIONS (4)
  - Induration [Recovering/Resolving]
  - Medication error [Unknown]
  - Oedema [Recovering/Resolving]
  - Extravasation [Recovering/Resolving]

NARRATIVE: CASE EVENT DATE: 20160928
